FAERS Safety Report 17651034 (Version 1)
Quarter: 2020Q2

REPORT INFORMATION
  Report Type: Spontaneous
  Country: US (occurrence: US)
  Receive Date: 20200409
  Receipt Date: 20200409
  Transmission Date: 20200713
  Serious: Yes (Death)
  Sender: FDA-Public Use
  Company Number: US-PFIZER INC-2020142255

PATIENT
  Age: 17 Year
  Sex: Male

DRUGS (3)
  1. VERAPAMIL HCL [Suspect]
     Active Substance: VERAPAMIL HYDROCHLORIDE
     Indication: CEREBRAL VASOCONSTRICTION
     Dosage: UNK
     Route: 013
  2. OXCARBAZEPINE. [Concomitant]
     Active Substance: OXCARBAZEPINE
     Indication: SEIZURE
     Dosage: UNK
  3. NICARDIPINE [Suspect]
     Active Substance: NICARDIPINE
     Indication: CEREBRAL VASOCONSTRICTION
     Dosage: UNK
     Route: 013

REACTIONS (1)
  - Drug ineffective [Fatal]
